FAERS Safety Report 5886778-9 (Version None)
Quarter: 2008Q3

REPORT INFORMATION
  Report Type: 
  Country: None (occurrence: None)
  Receive Date: 20080917
  Receipt Date: 20080909
  Transmission Date: 20090109
  Serious: Yes (Other)
  Sender: FDA-Public Use
  Company Number: US-SANOFI-SYNTHELABO-A03200802052

PATIENT
  Sex: Male
  Weight: 97.3 kg

DRUGS (13)
  1. AMBIEN [Suspect]
     Indication: INSOMNIA
     Route: 048
     Dates: start: 20070910, end: 20071120
  2. VALIUM [Interacting]
     Indication: DRUG USE FOR UNKNOWN INDICATION
     Route: 048
  3. NAPROSYN [Concomitant]
     Indication: MUSCLE SPASMS
     Route: 048
     Dates: start: 20070910
  4. ACYCLOVIR [Concomitant]
     Indication: VIRAL INFECTION
     Dosage: 400 MG EVERY 4 HOURS AS NEEDED
     Route: 048
     Dates: start: 20071120
  5. ATENOLOL [Concomitant]
     Indication: HYPERTENSION
     Route: 048
  6. SEROQUEL [Concomitant]
     Indication: BIPOLAR DISORDER
     Route: 048
  7. BENZTROPINE MESYLATE [Concomitant]
     Indication: DRUG USE FOR UNKNOWN INDICATION
     Dosage: UNK
     Route: 048
  8. BACLOFEN [Interacting]
     Indication: MUSCLE SPASMS
     Route: 048
  9. AZITHROMYCIN [Concomitant]
     Indication: DRUG USE FOR UNKNOWN INDICATION
     Dosage: UNK
     Route: 048
  10. TRAMADOL HCL [Concomitant]
     Indication: DRUG USE FOR UNKNOWN INDICATION
     Dosage: UNK
     Route: 048
  11. AMOXICILLIN [Concomitant]
     Indication: DRUG USE FOR UNKNOWN INDICATION
     Dosage: UNK
     Route: 048
  12. ACETAMINOPHEN AND HYDROCODONE BITARTRATE [Concomitant]
     Indication: DRUG USE FOR UNKNOWN INDICATION
     Dosage: 5/500 MG
     Route: 048
  13. PROZAC [Concomitant]
     Indication: DRUG USE FOR UNKNOWN INDICATION
     Route: 048

REACTIONS (5)
  - DRUG INEFFECTIVE [None]
  - DRUG INTERACTION [None]
  - IMPAIRED DRIVING ABILITY [None]
  - MALAISE [None]
  - ROAD TRAFFIC ACCIDENT [None]
